FAERS Safety Report 4900704-8 (Version None)
Quarter: 2006Q1

REPORT INFORMATION
  Report Type: 
  Country: None (occurrence: None)
  Receive Date: 20060201
  Receipt Date: 20060123
  Transmission Date: 20060701
  Serious: Yes (Hospitalization)
  Sender: FDA-Public Use
  Company Number: ENDC20060001

PATIENT
  Age: 30 Year
  Sex: Male
  Weight: 72.5755 kg

DRUGS (3)
  1. ENDOCET 7.5/500 MG ENDO [Suspect]
     Indication: POSTOPERATIVE ANALGESIA
     Dosage: 1 TAB Q3-4H PO
     Route: 048
     Dates: start: 20051207, end: 20051217
  2. VALIUM [Concomitant]
  3. KEFLEX [Concomitant]

REACTIONS (8)
  - ANXIETY [None]
  - DRUG WITHDRAWAL SYNDROME [None]
  - PARANOIA [None]
  - POST PROCEDURAL COMPLICATION [None]
  - PSYCHOTIC DISORDER [None]
  - SLEEP DISORDER [None]
  - STRESS [None]
  - THINKING ABNORMAL [None]
